FAERS Safety Report 18112436 (Version 1)
Quarter: 2020Q3

REPORT INFORMATION
  Report Type: Spontaneous
  Country: ES (occurrence: ES)
  Receive Date: 20200805
  Receipt Date: 20200805
  Transmission Date: 20201103
  Serious: Yes (Other)
  Sender: FDA-Public Use
  Company Number: NVSC2020ES214599

PATIENT
  Age: 71 Year
  Sex: Male

DRUGS (4)
  1. OPICAPONE [Suspect]
     Active Substance: OPICAPONE
     Indication: ON AND OFF PHENOMENON
     Dosage: UNK
     Route: 065
  2. AZILECT [Suspect]
     Active Substance: RASAGILINE MESYLATE
     Indication: ON AND OFF PHENOMENON
     Dosage: UNK
     Route: 065
  3. RIVASTIGMINE. [Suspect]
     Active Substance: RIVASTIGMINE
     Indication: PRODUCT USED FOR UNKNOWN INDICATION
     Dosage: UNK
     Route: 065
  4. SINEMET [Suspect]
     Active Substance: CARBIDOPA\LEVODOPA
     Indication: ON AND OFF PHENOMENON
     Dosage: 800 OT
     Route: 065

REACTIONS (10)
  - Psychotic disorder [Unknown]
  - Delusion [Unknown]
  - Balance disorder [Unknown]
  - Hallucination [Unknown]
  - Gait disturbance [Unknown]
  - Confusional state [Unknown]
  - Muscle rigidity [Unknown]
  - Anosmia [Unknown]
  - Bradykinesia [Unknown]
  - Therapeutic response shortened [Unknown]
